FAERS Safety Report 9290305 (Version 1)
Quarter: 2013Q2

REPORT INFORMATION
  Report Type: Spontaneous
  Country: CN (occurrence: CN)
  Receive Date: 20130515
  Receipt Date: 20130515
  Transmission Date: 20140414
  Serious: Yes (Other)
  Sender: FDA-Public Use
  Company Number: CN-ELI_LILLY_AND_COMPANY-CN201305004081

PATIENT
  Age: 59 Year
  Sex: Female

DRUGS (2)
  1. ZYPREXA [Suspect]
     Indication: MAJOR DEPRESSION
     Dosage: 10 MG, QD
     Route: 048
     Dates: start: 20130422
  2. ESCITALOPRAM [Concomitant]
     Dosage: 1 DF, UNKNOWN
     Dates: start: 20130422

REACTIONS (1)
  - Deep vein thrombosis [Recovering/Resolving]
